FAERS Safety Report 11632036 (Version 1)
Quarter: 2015Q4

REPORT INFORMATION
  Report Type: Spontaneous
  Country: US (occurrence: None)
  Receive Date: 20151014
  Receipt Date: 20151014
  Transmission Date: 20160304
  Serious: Yes (Other)
  Sender: FDA-Public Use
  Company Number: None

PATIENT
  Age: 96 Year
  Sex: Male

DRUGS (1)
  1. MITOMYCIN 40G VIALS ACCORD [Suspect]
     Active Substance: MITOMYCIN
     Indication: BLADDER CANCER
     Route: 042
     Dates: start: 20141215

REACTIONS (2)
  - Asthenia [None]
  - Dysuria [None]

NARRATIVE: CASE EVENT DATE: 20151012
